FAERS Safety Report 23467058 (Version 1)
Quarter: 2024Q1

REPORT INFORMATION
  Report Type: Spontaneous
  Country: US (occurrence: None)
  Receive Date: 20240131
  Receipt Date: 20240131
  Transmission Date: 20240410
  Serious: No
  Sender: FDA-Public Use
  Company Number: None

PATIENT
  Sex: Female

DRUGS (1)
  1. LETROZOLE [Suspect]
     Active Substance: LETROZOLE

REACTIONS (5)
  - Nausea [None]
  - Diarrhoea [None]
  - Fall [None]
  - Tibia fracture [None]
  - Frustration tolerance decreased [None]
